FAERS Safety Report 5048800-1 (Version None)
Quarter: 2006Q3

REPORT INFORMATION
  Report Type: 
  Country: None (occurrence: None)
  Receive Date: 20060706
  Receipt Date: 20060620
  Transmission Date: 20061208
  Serious: Yes (Hospitalization)
  Sender: FDA-Public Use
  Company Number: 2006RR-02741

PATIENT
  Age: 49 Year
  Sex: Male
  Weight: 104.5 kg

DRUGS (4)
  1. LORATADINE [Suspect]
     Indication: SEASONAL ALLERGY
     Dosage: 10 MG, ORAL
     Route: 048
     Dates: start: 20060201
  2. DISPERSIBLE ASPIRIN TABLETS [Concomitant]
  3. ATORVASTATIN CALCIUM [Concomitant]
  4. LISINOPRIL [Concomitant]

REACTIONS (1)
  - ATRIAL FIBRILLATION [None]
